FAERS Safety Report 7386255 (Version 2)
Quarter: 2014Q1

REPORT INFORMATION
  Report Type: Spontaneous
  Country: US (occurrence: US)
  Receive Date: 20100513
  Receipt Date: 20140206
  Transmission Date: 20141002
  Serious: Yes (Hospitalization)
  Sender: FDA-Public Use
  Company Number: US-JNJFOC-20100502430

PATIENT
  Sex: Female
  Weight: 95.26 kg

DRUGS (7)
  1. DURAGESIC [Suspect]
     Indication: PAIN
     Route: 062
     Dates: end: 2009
  2. DURAGESIC [Suspect]
     Indication: PAIN
     Route: 062
     Dates: start: 2009, end: 2010
  3. DURAGESIC [Suspect]
     Indication: PAIN
     Route: 062
     Dates: start: 2010
  4. OXYCODONE [Concomitant]
     Indication: PAIN
     Route: 048
  5. XANAX [Concomitant]
     Indication: ANXIETY
     Route: 048
  6. TERBINAFINE [Concomitant]
     Indication: SKIN LESION
     Route: 048
     Dates: start: 20100504
  7. TACLONEX [Concomitant]
     Indication: SKIN LESION
     Route: 061
     Dates: start: 20100504

REACTIONS (11)
  - Blood pressure increased [Recovered/Resolved]
  - Panic attack [Recovered/Resolved]
  - Localised infection [Not Recovered/Not Resolved]
  - Malaise [Recovered/Resolved]
  - Nausea [Not Recovered/Not Resolved]
  - Pain [Recovered/Resolved]
  - Hyperhidrosis [Not Recovered/Not Resolved]
  - Dizziness [Not Recovered/Not Resolved]
  - Vomiting [Recovered/Resolved]
  - Skin disorder [Not Recovered/Not Resolved]
  - Drug effect increased [Recovered/Resolved]
